FAERS Safety Report 16009870 (Version 2)
Quarter: 2019Q1

REPORT INFORMATION
  Report Type: Spontaneous
  Country: NL (occurrence: NL)
  Receive Date: 20190225
  Receipt Date: 20190311
  Transmission Date: 20190418
  Serious: Yes (Hospitalization)
  Sender: FDA-Public Use
  Company Number: NL-TOLMAR, INC.-2019NL001830

PATIENT

DRUGS (1)
  1. ELIGARD [Suspect]
     Active Substance: LEUPROLIDE ACETATE
     Indication: PROSTATE CANCER
     Dosage: 22.5 MG, Q3MONTHS
     Route: 058
     Dates: start: 20181126

REACTIONS (3)
  - Metastases to bone [Unknown]
  - Pneumonia [Unknown]
  - Pain [Unknown]

NARRATIVE: CASE EVENT DATE: 20190206
